FAERS Safety Report 6451878-1 (Version None)
Quarter: 2009Q4

REPORT INFORMATION
  Report Type: 
  Country: None (occurrence: None)
  Receive Date: 20091123
  Receipt Date: 20091109
  Transmission Date: 20100525
  Serious: Yes (Death, Hospitalization, Other)
  Sender: FDA-Public Use
  Company Number: GB-MYLANLABS-2009S1019672

PATIENT
  Sex: Male

DRUGS (5)
  1. BACLOFEN [Suspect]
     Indication: HICCUPS
  2. SERTRALINE HCL [Suspect]
     Indication: DEPRESSION
  3. AMANTADINE HCL [Suspect]
     Indication: PARKINSON'S DISEASE
  4. AMANTADINE HCL [Suspect]
  5. CO-BENELDOPA [Suspect]
     Indication: PARKINSON'S DISEASE

REACTIONS (6)
  - CEREBROVASCULAR ACCIDENT [None]
  - CIRCULATORY COLLAPSE [None]
  - DEATH [None]
  - HICCUPS [None]
  - HYPONATRAEMIA [None]
  - ORTHOSTATIC HYPOTENSION [None]
